FAERS Safety Report 4825153-2 (Version None)
Quarter: 2005Q4

REPORT INFORMATION
  Report Type: 
  Country: None (occurrence: None)
  Receive Date: 20051109
  Receipt Date: 20051109
  Transmission Date: 20060501
  Serious: Yes (Life-Threatening, Hospitalization, Disabling)
  Sender: FDA-Public Use
  Company Number: None

PATIENT
  Age: 45 Year
  Sex: Female
  Weight: 56.6996 kg

DRUGS (4)
  1. PIROXICM 20 MG MYLAN [Suspect]
     Dosage: 1-2 TIMES DAILY
     Dates: start: 20040201, end: 20041003
  2. SYNTHROID [Concomitant]
  3. KLONOPIN [Concomitant]
  4. ATIVAN [Concomitant]

REACTIONS (43)
  - ABDOMINAL DISCOMFORT [None]
  - ACNE [None]
  - AMNESIA [None]
  - ANORECTAL DISORDER [None]
  - ANXIETY [None]
  - ASTHENIA [None]
  - AXILLARY PAIN [None]
  - BLISTER [None]
  - BURNING SENSATION [None]
  - CANDIDIASIS [None]
  - DRY MOUTH [None]
  - DYSPNOEA [None]
  - EPISTAXIS [None]
  - EYE PAIN [None]
  - FACIAL PAIN [None]
  - FATIGUE [None]
  - FEELING ABNORMAL [None]
  - FEELING HOT [None]
  - GROIN PAIN [None]
  - HEART RATE IRREGULAR [None]
  - HYPOAESTHESIA [None]
  - LACERATION [None]
  - LACRIMAL DISORDER [None]
  - LACRIMATION INCREASED [None]
  - NAUSEA [None]
  - OESOPHAGEAL PAIN [None]
  - PAIN IN EXTREMITY [None]
  - PAIN OF SKIN [None]
  - PAINFUL DEFAECATION [None]
  - PALPITATIONS [None]
  - PHARYNGEAL OEDEMA [None]
  - PYREXIA [None]
  - RASH [None]
  - RECTAL LESION [None]
  - RHINALGIA [None]
  - SKIN DISCOLOURATION [None]
  - SWOLLEN TONGUE [None]
  - TONGUE DISORDER [None]
  - VAGINAL LACERATION [None]
  - VAGINAL LESION [None]
  - VAGINAL MUCOSAL BLISTERING [None]
  - VERTIGO [None]
  - VISUAL ACUITY REDUCED [None]
